FAERS Safety Report 13344945 (Version 1)
Quarter: 2017Q1

REPORT INFORMATION
  Report Type: Spontaneous
  Country: US (occurrence: US)
  Receive Date: 20170316
  Receipt Date: 20170316
  Transmission Date: 20170428
  Serious: No
  Sender: FDA-Public Use
  Company Number: None

PATIENT
  Age: 40 Year
  Sex: Female

DRUGS (1)
  1. CIMZIA [Suspect]
     Active Substance: CERTOLIZUMAB PEGOL
     Indication: RHEUMATOID ARTHRITIS
     Dosage: OTHER FREQUENCY:EVERY 4 WEEKS;?
     Route: 058
     Dates: start: 20161216

REACTIONS (3)
  - Headache [None]
  - Heart rate decreased [None]
  - Oropharyngeal discomfort [None]

NARRATIVE: CASE EVENT DATE: 20170315
